FAERS Safety Report 9630533 (Version 2)
Quarter: 2013Q4

REPORT INFORMATION
  Report Type: Report from Study
  Country: GB (occurrence: GB)
  Receive Date: 20131018
  Receipt Date: 20131106
  Transmission Date: 20140711
  Serious: Yes (Death)
  Sender: FDA-Public Use
  Company Number: GB-SHIRE-ALL1-2013-07010

PATIENT
  Age: 8 Year
  Sex: Male
  Weight: 25.1 kg

DRUGS (11)
  1. IDURSULFASE [Suspect]
     Indication: MUCOPOLYSACCHARIDOSIS II
     Dosage: 12 MG, UNKNOWN (0.48MG/KG)
     Route: 041
     Dates: start: 20081217
  2. LANSOPRAZOLE [Concomitant]
     Indication: GASTROOESOPHAGEAL REFLUX DISEASE
     Dosage: 15 MG, 1X/DAY:QD
     Route: 048
     Dates: start: 20121219
  3. RANITIDINE [Concomitant]
     Indication: GASTROOESOPHAGEAL REFLUX DISEASE
     Dosage: 75 MG, 2X/DAY:BID
     Route: 048
     Dates: start: 20121219
  4. PARACETAMOL [Concomitant]
     Indication: PAIN
     Dosage: 375 MG, 4X/DAY:QID
     Dates: start: 20121214
  5. PARACETAMOL [Concomitant]
     Indication: PREMEDICATION
  6. AZITHROMYCIN [Concomitant]
     Indication: PROPHYLAXIS
     Dosage: 200 MG, OTHER (3 TIMES A WEEK)
     Route: 048
     Dates: start: 20120607
  7. IBUPROFEN [Concomitant]
     Indication: PAIN
     Dosage: 150 MG, 2X/DAY:BID
     Route: 048
     Dates: start: 20120903
  8. ORAMORPH [Concomitant]
     Indication: PAIN
     Dosage: 4 MG, 2X/DAY:BID
     Route: 048
     Dates: start: 20120903
  9. SALBUTAMOL [Concomitant]
     Indication: COUGH
     Dosage: 200 ?G, 2X/DAY:BID
     Route: 055
     Dates: start: 20111019
  10. MOVICOL                            /01625101/ [Concomitant]
     Indication: CONSTIPATION
     Dosage: 1 DF, 1X/DAY:QD
     Route: 048
     Dates: start: 20120521
  11. PINTON [Concomitant]
     Indication: PREMEDICATION
     Dosage: UNK, UNKNOWN
     Route: 065

REACTIONS (1)
  - Death [Fatal]
